FAERS Safety Report 5354134-8 (Version None)
Quarter: 2007Q2

REPORT INFORMATION
  Report Type: 
  Country: None (occurrence: None)
  Receive Date: 20070612
  Receipt Date: 20070611
  Transmission Date: 20071010
  Serious: Yes (Death, Hospitalization)
  Sender: FDA-Public Use
  Company Number: US-BRISTOL-MYERS SQUIBB COMPANY-13604384

PATIENT
  Age: 63 Year
  Sex: Male

DRUGS (3)
  1. ERBITUX [Suspect]
     Indication: NEOPLASM
     Route: 042
     Dates: start: 20061031, end: 20061126
  2. TARCEVA [Suspect]
     Indication: NEOPLASM
     Route: 048
     Dates: start: 20061031, end: 20061126
  3. ZOMETA [Concomitant]
     Dates: start: 20061122, end: 20061122

REACTIONS (5)
  - ACUTE RESPIRATORY DISTRESS SYNDROME [None]
  - HEPATIC FAILURE [None]
  - PNEUMONIA [None]
  - RENAL FAILURE [None]
  - SEPTIC SHOCK [None]
